FAERS Safety Report 17127667 (Version 1)
Quarter: 2019Q4

REPORT INFORMATION
  Report Type: Spontaneous
  Country: GB (occurrence: GB)
  Receive Date: 20191209
  Receipt Date: 20191209
  Transmission Date: 20200122
  Serious: Yes (Hospitalization)
  Sender: FDA-Public Use
  Company Number: GB-FERRINGPH-2019FE08006

PATIENT
  Age: 68 Year
  Sex: Female

DRUGS (12)
  1. OMEPRAZOLE. [Concomitant]
     Active Substance: OMEPRAZOLE
     Route: 048
  2. BENDROFLUMETHIAZIDE [Concomitant]
     Active Substance: BENDROFLUMETHIAZIDE
     Route: 048
  3. SITAGLIPTIN [Concomitant]
     Active Substance: SITAGLIPTIN
     Route: 048
  4. PICOLAX (ANHYDROUS CITRIC ACID\MAGNESIUM OXIDE\SODIUM PICOSULFATE) [Suspect]
     Active Substance: ANHYDROUS CITRIC ACID\MAGNESIUM OXIDE\SODIUM PICOSULFATE
     Indication: PRODUCT USED FOR UNKNOWN INDICATION
     Dosage: 1 SACHET
     Route: 048
  5. ENALAPRIL [Concomitant]
     Active Substance: ENALAPRIL
     Route: 048
     Dates: end: 20191118
  6. DOXAZOSIN [Concomitant]
     Active Substance: DOXAZOSIN MESYLATE
     Route: 048
  7. ATENOLOL. [Concomitant]
     Active Substance: ATENOLOL
     Route: 048
  8. ACETYLSALICYLIC ACID [Concomitant]
     Active Substance: ASPIRIN
     Route: 048
  9. METFORMIN [Concomitant]
     Active Substance: METFORMIN HYDROCHLORIDE
     Route: 048
  10. FULTIUM D3 [Concomitant]
     Active Substance: CHOLECALCIFEROL
     Dosage: 1600 IU, 1 TIME DAILY
  11. SIMVASTATIN. [Concomitant]
     Active Substance: SIMVASTATIN
     Dosage: AT NIGHT
     Route: 048
  12. GLICLAZIDE [Concomitant]
     Active Substance: GLICLAZIDE
     Route: 048

REACTIONS (6)
  - Dyspnoea [Recovered/Resolved]
  - Paraesthesia [Recovered/Resolved]
  - Hypoaesthesia [Recovered/Resolved]
  - Vision blurred [Recovered/Resolved]
  - Paraesthesia oral [Recovered/Resolved]
  - Dizziness [Recovered/Resolved]
